FAERS Safety Report 11037948 (Version 3)
Quarter: 2015Q3

REPORT INFORMATION
  Report Type: Spontaneous
  Country: US (occurrence: US)
  Receive Date: 20150416
  Receipt Date: 20150821
  Transmission Date: 20151125
  Serious: Yes (Death, Hospitalization, Other)
  Sender: FDA-Public Use
  Company Number: US-009507513-1504USA015499

PATIENT
  Sex: Male

DRUGS (1)
  1. JANUVIA [Suspect]
     Active Substance: SITAGLIPTIN PHOSPHATE
     Indication: TYPE 2 DIABETES MELLITUS
     Dosage: 100 MG, QD
     Route: 048
     Dates: start: 20110309, end: 201303

REACTIONS (21)
  - Pancreatic carcinoma metastatic [Fatal]
  - Hypertension [Unknown]
  - Renal disorder [Unknown]
  - Duodenal ulcer [Unknown]
  - Tonsillectomy [Unknown]
  - Metastases to lymph nodes [Unknown]
  - Metastases to lung [Unknown]
  - Blood cholesterol increased [Unknown]
  - Carpal tunnel decompression [Unknown]
  - Bile duct stent insertion [Unknown]
  - Metastases to liver [Unknown]
  - Hip arthroplasty [Unknown]
  - Gallbladder disorder [Unknown]
  - Muscle mass [Unknown]
  - Gastrooesophageal reflux disease [Unknown]
  - Gastritis [Unknown]
  - Chronic obstructive pulmonary disease [Not Recovered/Not Resolved]
  - Osteoarthritis [Unknown]
  - Bone lesion [Unknown]
  - Sinus tachycardia [Unknown]
  - Urinary tract infection [Unknown]

NARRATIVE: CASE EVENT DATE: 20130129
